FAERS Safety Report 23433167 (Version 1)
Quarter: 2024Q1

REPORT INFORMATION
  Report Type: Spontaneous
  Country: US (occurrence: None)
  Receive Date: 20240119
  Receipt Date: 20240119
  Transmission Date: 20240410
  Serious: Yes (Other)
  Sender: FDA-Public Use
  Company Number: None

PATIENT
  Age: 52 Year
  Sex: Female
  Weight: 69.75 kg

DRUGS (5)
  1. GLUTATHIONE [Suspect]
     Active Substance: GLUTATHIONE
     Indication: Product used for unknown indication
     Dosage: FREQUENCY : WEEKLY;?
     Route: 058
     Dates: start: 20230914, end: 20231212
  2. SYNTHROID [Concomitant]
     Active Substance: LEVOTHYROXINE SODIUM
  3. VITAMINS [Concomitant]
     Active Substance: VITAMINS
  4. VITAMIN B COMPLEX [Suspect]
     Active Substance: CYANOCOBALAMIN\DEXPANTHENOL\NIACINAMIDE\PYRIDOXINE HYDROCHLORIDE\RIBOFLAVIN 5^-PHOSPHATE SODIUM\THIA
  5. VITAMIN C [Suspect]
     Active Substance: ASCORBIC ACID

REACTIONS (5)
  - Sinusitis [None]
  - Vomiting [None]
  - Headache [None]
  - Hypophagia [None]
  - Product quality issue [None]

NARRATIVE: CASE EVENT DATE: 20230923
